FAERS Safety Report 23747802 (Version 1)
Quarter: 2024Q2

REPORT INFORMATION
  Report Type: Spontaneous
  Country: US (occurrence: US)
  Receive Date: 20240416
  Receipt Date: 20240416
  Transmission Date: 20240716
  Serious: No
  Sender: FDA-Public Use
  Company Number: US-PERRIGO-23US014097

PATIENT
  Sex: Female
  Weight: 58.957 kg

DRUGS (4)
  1. MICONAZOLE 3 COMBINATION PACK [Suspect]
     Active Substance: MICONAZOLE NITRATE
     Indication: Vulvovaginal mycotic infection
     Dosage: 200 MG, SINGLE
     Route: 067
     Dates: start: 2022, end: 2022
  2. MICONAZOLE 3 COMBINATION PACK [Suspect]
     Active Substance: MICONAZOLE NITRATE
     Dosage: 200 MG, SINGLE
     Route: 067
     Dates: start: 20231207, end: 20231207
  3. KEFLEX [Suspect]
     Active Substance: CEPHALEXIN
     Indication: Sinusitis
     Dosage: UNK, UNK
     Route: 048
     Dates: start: 20231206
  4. VITAMINS [Concomitant]
     Active Substance: VITAMINS
     Indication: Supplementation therapy
     Dosage: UNK
     Route: 065

REACTIONS (3)
  - Vomiting [Recovered/Resolved]
  - Expired product administered [Recovered/Resolved]
  - Incorrect product administration duration [Recovered/Resolved]

NARRATIVE: CASE EVENT DATE: 20220101
